FAERS Safety Report 4736487-4 (Version None)
Quarter: 2005Q3

REPORT INFORMATION
  Report Type: 
  Country: None (occurrence: None)
  Receive Date: 20050802
  Receipt Date: 20050725
  Transmission Date: 20060218
  Serious: Yes (Hospitalization)
  Sender: FDA-Public Use
  Company Number: TCI2005A03269

PATIENT
  Sex: Male

DRUGS (2)
  1. ACTOS [Suspect]
     Indication: DIABETES MELLITUS
     Dosage: 30 MG (30 MG, 1 D) PER ORAL
     Route: 048
     Dates: start: 20050501, end: 20050705
  2. NORVASC [Concomitant]

REACTIONS (4)
  - ANOREXIA [None]
  - GASTRIC CANCER [None]
  - HYPOPROTEINAEMIA [None]
  - MALIGNANT ASCITES [None]
